FAERS Safety Report 7338126-5 (Version None)
Quarter: 2011Q1

REPORT INFORMATION
  Report Type: 
  Country: None (occurrence: None)
  Receive Date: 20110210
  Receipt Date: 20110106
  Transmission Date: 20110831
  Serious: No
  Sender: FDA-Public Use
  Company Number: 1000018066

PATIENT
  Sex: Female

DRUGS (1)
  1. SAVELLA [Suspect]

REACTIONS (1)
  - HEPATIC ENZYME INCREASED [None]
